FAERS Safety Report 9825565 (Version 1)
Quarter: 2013Q4

REPORT INFORMATION
  Report Type: Spontaneous
  Country: GB (occurrence: None)
  Receive Date: 20131101
  Receipt Date: 20131101
  Transmission Date: 20140711
  Serious: Yes (Other)
  Sender: FDA-Public Use
  Company Number: E2B_00001076

PATIENT
  Age: 50 Year
  Sex: Female
  Weight: 87.99 kg

DRUGS (2)
  1. LOSARTAN (UNKNOWN) (LOSARTAN) [Suspect]
     Indication: PRODUCT USED FOR UNKNOWN INDICATION
     Dates: start: 20130603, end: 20130701
  2. AMLODIPINE (UNKNOWN) [Concomitant]

REACTIONS (1)
  - Glomerular filtration rate decreased [None]
